FAERS Safety Report 23411387 (Version 1)
Quarter: 2024Q1

REPORT INFORMATION
  Report Type: Spontaneous
  Country: CN (occurrence: CN)
  Receive Date: 20240117
  Receipt Date: 20240117
  Transmission Date: 20240409
  Serious: Yes (Other)
  Sender: FDA-Public Use
  Company Number: CN-PFIZER INC-PV202400003962

PATIENT
  Age: 10 Year
  Sex: Male
  Weight: 33 kg

DRUGS (1)
  1. CYTARABINE [Suspect]
     Active Substance: CYTARABINE
     Indication: Leukaemia
     Dosage: 86 MG, 1X/DAY (86MG H QD)
     Route: 058
     Dates: start: 20231222, end: 20231225

REACTIONS (1)
  - Retching [Recovering/Resolving]

NARRATIVE: CASE EVENT DATE: 20231224
